FAERS Safety Report 5379271-3 (Version None)
Quarter: 2007Q3

REPORT INFORMATION
  Report Type: 
  Country: None (occurrence: None)
  Receive Date: 20070705
  Receipt Date: 20070626
  Transmission Date: 20080115
  Serious: Yes (Other)
  Sender: FDA-Public Use
  Company Number: US-PFIZER INC-2007045487

PATIENT
  Sex: Female

DRUGS (1)
  1. ZOLOFT [Suspect]

REACTIONS (7)
  - AFFECT LABILITY [None]
  - AMNESIA [None]
  - CARDIAC FLUTTER [None]
  - DECREASED APPETITE [None]
  - DIARRHOEA [None]
  - HOMICIDAL IDEATION [None]
  - MOOD SWINGS [None]
